FAERS Safety Report 7228892-1 (Version None)
Quarter: 2011Q1

REPORT INFORMATION
  Report Type: 
  Country: None (occurrence: None)
  Receive Date: 20110117
  Receipt Date: 20110110
  Transmission Date: 20110831
  Serious: Yes (Death, Hospitalization)
  Sender: FDA-Public Use
  Company Number: BE-ELI_LILLY_AND_COMPANY-BE201005000779

PATIENT
  Sex: Male
  Weight: 63 kg

DRUGS (18)
  1. PANTOZOL [Concomitant]
     Dates: start: 20050309
  2. FLAGYL [Concomitant]
     Dates: start: 20090709
  3. CISPLATIN [Suspect]
     Indication: HEAD AND NECK CANCER
     Dosage: 75 MG/M2, DAY 1 EVERY 21 DAYS
     Route: 042
     Dates: start: 20100317
  4. TEMESTA [Concomitant]
     Indication: PROPHYLAXIS
     Dates: start: 20100310, end: 20100311
  5. CETUXIMAB [Suspect]
     Dosage: 250 MG/M2, WEEKLY (1/W)
     Route: 042
  6. DAFALGAN [Concomitant]
     Indication: PROPHYLAXIS
     Dates: start: 20090101
  7. DEXAMETHASONE [Concomitant]
     Indication: PROPHYLAXIS
     Dates: start: 20100316, end: 20100319
  8. DEXAMETHASONE [Concomitant]
     Dates: start: 20100427, end: 20100429
  9. SOLU-MEDROL [Concomitant]
     Indication: PROPHYLAXIS
     Dates: start: 20100407, end: 20100407
  10. EMEND [Concomitant]
     Indication: PROPHYLAXIS
     Dates: start: 20100428, end: 20100430
  11. PEMETREXED [Suspect]
     Indication: HEAD AND NECK CANCER
     Dosage: 500 MG/M2, DAY 1 EVERY 21 DAYS
     Route: 042
     Dates: start: 20100317
  12. CETUXIMAB [Suspect]
     Indication: HEAD AND NECK CANCER
     Dosage: 400 MG/M2, DAY 1 CYCLE 1
     Route: 042
     Dates: start: 20100317
  13. SODIUM CHLORIDE [Concomitant]
     Indication: PROPHYLAXIS
     Dates: start: 20100428
  14. ZOFRAN [Concomitant]
     Indication: PROPHYLAXIS
     Dates: start: 20100428, end: 20100429
  15. REDOMEX [Concomitant]
     Dates: start: 20091101
  16. TEMESTA [Concomitant]
     Dates: start: 20100326, end: 20100326
  17. TEMGESIC [Concomitant]
     Indication: PROPHYLAXIS
     Dates: start: 20100324
  18. OPTIVIT [Concomitant]
     Indication: PROPHYLAXIS
     Dates: start: 20090101

REACTIONS (2)
  - PNEUMONIA [None]
  - DEATH [None]
